FAERS Safety Report 5079785-X (Version None)
Quarter: 2006Q3

REPORT INFORMATION
  Report Type: 
  Country: None (occurrence: None)
  Receive Date: 20060808
  Receipt Date: 20060801
  Transmission Date: 20061208
  Serious: Yes (Hospitalization)
  Sender: FDA-Public Use
  Company Number: TPA2005A01308

PATIENT
  Age: 76 Year
  Sex: Male
  Weight: 80.7403 kg

DRUGS (1)
  1. ACTOS [Suspect]
     Indication: DIABETES MELLITUS NON-INSULIN-DEPENDENT
     Dosage: 45 MG, 1 IN 1 D, PER ORAL
     Route: 048
     Dates: start: 20031020

REACTIONS (2)
  - ANOREXIA [None]
  - PNEUMONIA [None]
